FAERS Safety Report 23242032 (Version 1)
Quarter: 2023Q4

REPORT INFORMATION
  Report Type: Spontaneous
  Country: CN (occurrence: CN)
  Receive Date: 20231129
  Receipt Date: 20231129
  Transmission Date: 20240109
  Serious: Yes (Hospitalization)
  Sender: FDA-Public Use
  Company Number: CN-MYLANLABS-2023M1126267

PATIENT
  Age: 44 Year
  Sex: Female

DRUGS (22)
  1. TRASTUZUMAB [Suspect]
     Active Substance: TRASTUZUMAB
     Indication: HER2 positive breast cancer
     Dosage: UNK (DOSE: FIRST CYCLE AT 8MG/KG Q3W FOR FOUR CYCLES)
     Route: 042
     Dates: start: 202103
  2. TRASTUZUMAB [Suspect]
     Active Substance: TRASTUZUMAB
     Indication: Invasive ductal breast carcinoma
     Dosage: UNK (DOSE: SUBSEQUENT CYCLE AT 6MG/KG Q3W FOR FOUR CYCLES)
     Route: 042
     Dates: start: 202103
  3. PACLITAXEL [Suspect]
     Active Substance: PACLITAXEL
     Indication: HER2 positive breast cancer
     Dosage: UNK, LIPOSOMAL (DOSE: 270MG ON DAY 2-EVERY 3 WEEKS FOR FOUR CYCLES)
     Route: 042
     Dates: start: 202103
  4. PACLITAXEL [Suspect]
     Active Substance: PACLITAXEL
     Indication: Invasive ductal breast carcinoma
  5. CARBOPLATIN [Suspect]
     Active Substance: CARBOPLATIN
     Indication: HER2 positive breast cancer
     Dosage: UNK (DOSE: 500MG ON DAY 3 Q3W FOR FOUR CYCLES)
     Route: 042
     Dates: start: 202103
  6. CARBOPLATIN [Suspect]
     Active Substance: CARBOPLATIN
     Indication: Invasive ductal breast carcinoma
  7. PERTUZUMAB [Suspect]
     Active Substance: PERTUZUMAB
     Indication: HER2 positive breast cancer
     Dosage: UNK (DOSE: FIRST CYCLE AT 840MG Q3W FOR FOUR CYCLES)
     Route: 042
     Dates: start: 202103
  8. PERTUZUMAB [Suspect]
     Active Substance: PERTUZUMAB
     Indication: Invasive ductal breast carcinoma
     Dosage: UNK (DOSE: SUBSEQUENT CYCLE 420MG Q3W FOR FOUR CYCLES)
     Route: 042
     Dates: start: 202103
  9. DOXORUBICIN [Suspect]
     Active Substance: DOXORUBICIN
     Indication: HER2 positive breast cancer
     Dosage: UNK, LIPOSOMAL, DOSE: DAY 1-20 MG Q3W FOR FOUR CYCLES
     Route: 042
     Dates: start: 202107
  10. DOXORUBICIN [Suspect]
     Active Substance: DOXORUBICIN
     Indication: Invasive ductal breast carcinoma
     Dosage: UNK, LIPOSOMAL, DAY 2: 40MG Q3W FOR FOUR CYCLES
     Route: 042
     Dates: start: 202107
  11. CYCLOPHOSPHAMIDE [Suspect]
     Active Substance: CYCLOPHOSPHAMIDE
     Indication: HER2 positive breast cancer
     Dosage: UNK (DOSE: ON DAY1-100MG Q3W FOR FOUR CYCLES)
     Route: 042
     Dates: start: 202107
  12. CYCLOPHOSPHAMIDE [Suspect]
     Active Substance: CYCLOPHOSPHAMIDE
     Indication: Invasive ductal breast carcinoma
  13. KADCYLA [Suspect]
     Active Substance: ADO-TRASTUZUMAB EMTANSINE
     Indication: HER2 positive breast cancer
     Dosage: UNK (DOSE: 200MG Q3W FOR NINE CYCLES)
     Route: 042
     Dates: start: 202110
  14. KADCYLA [Suspect]
     Active Substance: ADO-TRASTUZUMAB EMTANSINE
     Indication: Invasive ductal breast carcinoma
  15. INVESTIGATIONAL PRODUCT [Suspect]
     Active Substance: INVESTIGATIONAL PRODUCT
     Indication: HER2 positive breast cancer
     Dosage: UNK
     Route: 042
     Dates: start: 202205
  16. INVESTIGATIONAL PRODUCT [Suspect]
     Active Substance: INVESTIGATIONAL PRODUCT
     Indication: Invasive ductal breast carcinoma
  17. PYROTINIB [Suspect]
     Active Substance: PYROTINIB
     Indication: HER2 positive breast cancer
     Dosage: UNK
     Route: 065
     Dates: start: 202205
  18. PYROTINIB [Suspect]
     Active Substance: PYROTINIB
     Indication: Invasive ductal breast carcinoma
  19. VINORELBINE [Suspect]
     Active Substance: VINORELBINE TARTRATE
     Indication: HER2 positive breast cancer
     Dosage: UNK
     Route: 065
     Dates: start: 202205
  20. VINORELBINE [Suspect]
     Active Substance: VINORELBINE TARTRATE
     Indication: Invasive ductal breast carcinoma
  21. CATEQUENTINIB [Suspect]
     Active Substance: CATEQUENTINIB
     Indication: HER2 positive breast cancer
     Dosage: UNK
     Route: 065
     Dates: start: 202206
  22. CATEQUENTINIB [Suspect]
     Active Substance: CATEQUENTINIB
     Indication: Invasive ductal breast carcinoma

REACTIONS (2)
  - Disease progression [Unknown]
  - Drug ineffective [Unknown]

NARRATIVE: CASE EVENT DATE: 20210301
